FAERS Safety Report 9242148 (Version 1)
Quarter: 2013Q2

REPORT INFORMATION
  Report Type: Spontaneous
  Country: US (occurrence: US)
  Receive Date: 20130419
  Receipt Date: 20130419
  Transmission Date: 20140414
  Serious: No
  Sender: FDA-Public Use
  Company Number: US-PFIZER INC-2013120052

PATIENT
  Sex: 0

DRUGS (4)
  1. AZITHROMYCIN [Suspect]
     Indication: NASOPHARYNGITIS
     Dosage: UNK
  2. AZITHROMYCIN [Suspect]
     Indication: COUGH
  3. PREDNISONE [Suspect]
     Indication: NASOPHARYNGITIS
     Dosage: UNK
  4. PREDNISONE [Suspect]
     Indication: COUGH

REACTIONS (1)
  - Feeling abnormal [Unknown]
